FAERS Safety Report 18714421 (Version 3)
Quarter: 2021Q1

REPORT INFORMATION
  Report Type: Report from Study
  Country: US (occurrence: US)
  Receive Date: 20210107
  Receipt Date: 20210223
  Transmission Date: 20210419
  Serious: Yes (Hospitalization)
  Sender: FDA-Public Use
  Company Number: US-SEATTLE GENETICS-2020SGN05112

PATIENT
  Age: 57 Year
  Sex: Male

DRUGS (6)
  1. TUCATINIB [Suspect]
     Active Substance: TUCATINIB
     Dosage: UNK, BID
  2. TUCATINIB [Suspect]
     Active Substance: TUCATINIB
     Dosage: 1 UNK
  3. TUCATINIB [Suspect]
     Active Substance: TUCATINIB
     Indication: BLADDER CANCER
     Dosage: 1 DF, QD
  4. TUCATINIB [Suspect]
     Active Substance: TUCATINIB
     Dosage: 2 DF, QD
  5. CAPECITABINE. [Concomitant]
     Active Substance: CAPECITABINE
  6. MULTIVITAMIN                       /07504101/ [Concomitant]
     Active Substance: VITAMINS

REACTIONS (14)
  - Underdose [Unknown]
  - Brain oedema [Unknown]
  - White blood cell count increased [Unknown]
  - Catheter removal [Unknown]
  - Decreased appetite [Unknown]
  - Fluid intake reduced [Unknown]
  - Fatigue [Unknown]
  - Infection [Unknown]
  - Brain neoplasm [Unknown]
  - Insomnia [Unknown]
  - Unevaluable event [Unknown]
  - Disease progression [Unknown]
  - Off label use [Unknown]
  - Drug ineffective [Unknown]

NARRATIVE: CASE EVENT DATE: 202011
